FAERS Safety Report 13801980 (Version 3)
Quarter: 2017Q3

REPORT INFORMATION
  Report Type: Spontaneous
  Country: US (occurrence: US)
  Receive Date: 20170727
  Receipt Date: 20170824
  Transmission Date: 20171127
  Serious: Yes (Hospitalization)
  Sender: FDA-Public Use
  Company Number: US-STRONGBRIDGE BIOPHARMA-SR-KEV-2017-102

PATIENT
  Age: 25 Year
  Sex: Female

DRUGS (2)
  1. KEVEYIS [Suspect]
     Active Substance: DICHLORPHENAMIDE
     Indication: FAMILIAL PERIODIC PARALYSIS
     Route: 048
     Dates: start: 20170512, end: 201707
  2. KEVEYIS [Suspect]
     Active Substance: DICHLORPHENAMIDE
     Route: 048
     Dates: start: 20170726

REACTIONS (4)
  - Disease recurrence [Not Recovered/Not Resolved]
  - Fatigue [Not Recovered/Not Resolved]
  - Disease recurrence [Unknown]
  - Drug ineffective [Recovered/Resolved]

NARRATIVE: CASE EVENT DATE: 201707
